FAERS Safety Report 16327440 (Version 2)
Quarter: 2019Q3

REPORT INFORMATION
  Report Type: Spontaneous
  Country: US (occurrence: US)
  Receive Date: 20190517
  Receipt Date: 20190807
  Transmission Date: 20191004
  Serious: No
  Sender: FDA-Public Use
  Company Number: US-009507513-1905USA007479

PATIENT

DRUGS (8)
  1. CUBICIN [Suspect]
     Active Substance: DAPTOMYCIN
     Indication: STAPHYLOCOCCAL INFECTION
  2. CEFTAROLINE FOSAMIL ACETATE [Concomitant]
     Active Substance: CEFTAROLINE FOSAMIL
     Indication: STAPHYLOCOCCAL INFECTION
  3. GENTAMICIN. [Concomitant]
     Active Substance: GENTAMICIN
     Indication: STAPHYLOCOCCAL INFECTION
  4. RIFAMPIN. [Concomitant]
     Active Substance: RIFAMPIN
     Indication: ENDOCARDITIS BACTERIAL
  5. CEFTAROLINE FOSAMIL ACETATE [Concomitant]
     Active Substance: CEFTAROLINE FOSAMIL
     Indication: ENDOCARDITIS BACTERIAL
     Dosage: 200 MILLIGRAM, Q8H
  6. CUBICIN [Suspect]
     Active Substance: DAPTOMYCIN
     Indication: ENDOCARDITIS BACTERIAL
  7. RIFAMPIN. [Concomitant]
     Active Substance: RIFAMPIN
     Indication: STAPHYLOCOCCAL INFECTION
  8. GENTAMICIN. [Concomitant]
     Active Substance: GENTAMICIN
     Indication: ENDOCARDITIS BACTERIAL

REACTIONS (1)
  - Product use in unapproved indication [Unknown]
